FAERS Safety Report 17540709 (Version 1)
Quarter: 2020Q1

REPORT INFORMATION
  Report Type: Report from Study
  Country: CA (occurrence: CA)
  Receive Date: 20200313
  Receipt Date: 20200313
  Transmission Date: 20200409
  Serious: Yes (Other)
  Sender: FDA-Public Use
  Company Number: CA-JNJFOC-20200303096

PATIENT
  Age: 59 Year
  Sex: Female
  Weight: 88.9 kg

DRUGS (1)
  1. STELARA [Suspect]
     Active Substance: USTEKINUMAB
     Indication: PSORIATIC ARTHROPATHY
     Route: 058
     Dates: start: 20190307

REACTIONS (6)
  - Loss of consciousness [Unknown]
  - Anxiety [Unknown]
  - Back pain [Unknown]
  - Traumatic shock [Unknown]
  - Road traffic accident [Unknown]
  - Musculoskeletal chest pain [Unknown]

NARRATIVE: CASE EVENT DATE: 2020
